FAERS Safety Report 21552717 (Version 1)
Quarter: 2022Q4

REPORT INFORMATION
  Report Type: Report from Study
  Country: GT (occurrence: GT)
  Receive Date: 20221104
  Receipt Date: 20221104
  Transmission Date: 20230112
  Serious: Yes (Death)
  Sender: FDA-Public Use
  Company Number: GT-MYLANLABS-2022M1120790

PATIENT
  Age: 91 Year
  Sex: Female
  Weight: 68.03 kg

DRUGS (3)
  1. NORVASC [Suspect]
     Active Substance: AMLODIPINE BESYLATE
     Indication: Hypertension
     Dosage: 5 MILLIGRAM, QD, (1 TABLET DAILY)
     Route: 048
     Dates: start: 202105
  2. NORVASC [Suspect]
     Active Substance: AMLODIPINE BESYLATE
     Dosage: 5 MILLIGRAM, QD, (5 MG ONE TABLET DAILY)
     Route: 048
     Dates: start: 202201
  3. NORVASC [Suspect]
     Active Substance: AMLODIPINE BESYLATE
     Indication: Hypertension
     Dosage: 0.5 DOSAGE FORM, QD, (1/2 TABLET DAILY)
     Route: 048
     Dates: start: 20211001, end: 20220201

REACTIONS (2)
  - Myocardial infarction [Fatal]
  - Wrong technique in product usage process [Not Recovered/Not Resolved]

NARRATIVE: CASE EVENT DATE: 20211001
